FAERS Safety Report 8202854-X (Version None)
Quarter: 2012Q1

REPORT INFORMATION
  Report Type: 
  Country: None (occurrence: None)
  Receive Date: 20120312
  Receipt Date: 20120312
  Transmission Date: 20120608
  Serious: Yes (Death, Life-Threatening, Hospitalization, Disabling, Congenital Anomaly, Other)
  Sender: FDA-Public Use
  Company Number: None

PATIENT
  Age: 20 Year
  Sex: Male
  Weight: 605.54 kg

DRUGS (1)
  1. ALKA SELTZER COLD PLUS DAY AND NIGHT. [Suspect]

REACTIONS (5)
  - HEART RATE IRREGULAR [None]
  - NASOPHARYNGITIS [None]
  - PALPITATIONS [None]
  - MITRAL VALVE PROLAPSE [None]
  - TACHYCARDIA [None]
